FAERS Safety Report 6523833-4 (Version None)
Quarter: 2009Q4

REPORT INFORMATION
  Report Type: 
  Country: None (occurrence: None)
  Receive Date: 20091231
  Receipt Date: 20091222
  Transmission Date: 20100525
  Serious: Yes (Hospitalization, Other)
  Sender: FDA-Public Use
  Company Number: US-ROCHE-674975

PATIENT
  Age: 77 Year
  Sex: Female

DRUGS (2)
  1. XELODA [Suspect]
     Route: 048
  2. GEMZAR [Suspect]
     Route: 065

REACTIONS (5)
  - ABDOMINAL PAIN [None]
  - LEUKOCYTOSIS [None]
  - PNEUMATOSIS INTESTINALIS [None]
  - PYREXIA [None]
  - TENDERNESS [None]
